FAERS Safety Report 19021932 (Version 3)
Quarter: 2021Q3

REPORT INFORMATION
  Report Type: Spontaneous
  Country: US (occurrence: US)
  Receive Date: 20210317
  Receipt Date: 20210825
  Transmission Date: 20211014
  Serious: No
  Sender: FDA-Public Use
  Company Number: US-SUNOVION-2021SUN000805

PATIENT
  Sex: Male

DRUGS (4)
  1. EMBEDA [Suspect]
     Active Substance: MORPHINE SULFATE\NALTREXONE HYDROCHLORIDE
     Dosage: UNK
  2. RYTARY [Suspect]
     Active Substance: CARBIDOPA\LEVODOPA
     Dosage: UNK
  3. KYNMOBI [Suspect]
     Active Substance: APOMORPHINE HYDROCHLORIDE
     Indication: PARKINSON^S DISEASE
     Dosage: 25 MG,3?4 TIMES A WEEK
     Route: 060
     Dates: start: 20201201
  4. NEUPRO [Suspect]
     Active Substance: ROTIGOTINE
     Dosage: UNK

REACTIONS (17)
  - Speech disorder [Unknown]
  - Protein intolerance [Not Recovered/Not Resolved]
  - Dysarthria [Unknown]
  - Abdominal pain upper [Unknown]
  - Dysgraphia [Not Recovered/Not Resolved]
  - Muscle rigidity [Not Recovered/Not Resolved]
  - Nausea [Unknown]
  - Dyskinesia [Unknown]
  - Bradykinesia [Unknown]
  - Dysphonia [Not Recovered/Not Resolved]
  - Insomnia [Not Recovered/Not Resolved]
  - Dairy intolerance [Not Recovered/Not Resolved]
  - Posture abnormal [Not Recovered/Not Resolved]
  - Diplopia [Not Recovered/Not Resolved]
  - Gait disturbance [Unknown]
  - On and off phenomenon [Not Recovered/Not Resolved]
  - Dizziness [Unknown]
